FAERS Safety Report 4358690-8 (Version None)
Quarter: 2004Q2

REPORT INFORMATION
  Report Type: 
  Country: None (occurrence: None)
  Receive Date: 20040511
  Receipt Date: 20040302
  Transmission Date: 20050107
  Serious: Yes (Death, Hospitalization, Other)
  Sender: FDA-Public Use
  Company Number: 2004014488

PATIENT
  Age: 50 Year
  Sex: Male

DRUGS (17)
  1. DELAVIRDINE (DELAVIRDINE) [Suspect]
     Indication: HIV INFECTION
     Dosage: 1200 MG
     Dates: start: 20030221, end: 20030304
  2. ATAZANAVIR (ATAZANAVIR) [Suspect]
     Indication: HIV INFECTION
     Dosage: 400 MG (DAILY), ORAL
     Route: 048
     Dates: start: 20030221, end: 20030304
  3. VERAPAMIL HCL [Suspect]
     Indication: HYPERTENSION
     Dosage: 240 MG (DAILY), ORAL
     Route: 048
     Dates: start: 19951114
  4. MIRTAZAPINE [Suspect]
     Indication: ILL-DEFINED DISORDER
     Dosage: 60 MG, ORAL
     Route: 048
  5. TENOFOVIR DISOPROXIL FUMARATE (TENOFOVIR DISOPROXIL FUMARATE) [Concomitant]
  6. LAMIVUDINE (LAMIVUDINE) [Concomitant]
  7. FEXOFENADINE HYDROCHLORIDE [Concomitant]
  8. DIPHENOXYLATE W/ATROPINE SULFATE (ATROPINE SULFATE, DIPHENOXYLATE) [Concomitant]
  9. VICODIN [Concomitant]
  10. ACYCLOVIR [Concomitant]
  11. BACTRIM [Concomitant]
  12. ZOLPIDEM TARTRATE [Concomitant]
  13. LORAZEPAM [Concomitant]
  14. GABAPENTIN [Concomitant]
  15. BECLOMETHASONE DIPROPIONATE [Concomitant]
  16. CALCIUM CITRATE (CALCIUM CITRATE) [Concomitant]
  17. DICYCLOVERINE HYDROCHLORIDE (DICYCLOVERINE HYDROCHLORIDE) [Concomitant]

REACTIONS (28)
  - ALANINE AMINOTRANSFERASE INCREASED [None]
  - ASPARTATE AMINOTRANSFERASE INCREASED [None]
  - ATHEROSCLEROSIS [None]
  - BLOOD BILIRUBIN INCREASED [None]
  - BLOOD CREATINE INCREASED [None]
  - BLOOD UREA INCREASED [None]
  - BUNDLE BRANCH BLOCK RIGHT [None]
  - CARDIAC ARREST [None]
  - CARDIAC FAILURE CONGESTIVE [None]
  - CARDIOMEGALY [None]
  - CEREBRAL ARTERY OCCLUSION [None]
  - CHEST PAIN [None]
  - CHEST X-RAY ABNORMAL [None]
  - DIZZINESS [None]
  - DYSPNOEA [None]
  - ELECTROCARDIOGRAM QT CORRECTED INTERVAL PROLONGED [None]
  - GAMMA-GLUTAMYLTRANSFERASE INCREASED [None]
  - HAEMATOCRIT DECREASED [None]
  - HEART RATE DECREASED [None]
  - HEPATIC CONGESTION [None]
  - HEPATIC STEATOSIS [None]
  - MYOCARDIAL ISCHAEMIA [None]
  - NAUSEA [None]
  - NODAL ARRHYTHMIA [None]
  - NODAL RHYTHM [None]
  - PCO2 DECREASED [None]
  - RHYTHM IDIOVENTRICULAR [None]
  - VENTRICULAR HYPERTROPHY [None]
